FAERS Safety Report 18819184 (Version 1)
Quarter: 2021Q1

REPORT INFORMATION
  Report Type: Spontaneous
  Country: AT (occurrence: AT)
  Receive Date: 20210201
  Receipt Date: 20210201
  Transmission Date: 20210419
  Serious: Yes (Other)
  Sender: FDA-Public Use
  Company Number: AT-MYLANLABS-2021M1005921

PATIENT
  Age: 64 Year
  Sex: Male

DRUGS (24)
  1. RITUXIMAB. [Suspect]
     Active Substance: RITUXIMAB
     Dosage: 2 ADDITIONAL CYCLES R?POLA
     Route: 065
     Dates: start: 202009, end: 202010
  2. RITUXIMAB. [Suspect]
     Active Substance: RITUXIMAB
     Dosage: 4 CYCLES WITH R?GDP
     Route: 065
     Dates: start: 201812
  3. DOXORUBICIN [Suspect]
     Active Substance: DOXORUBICIN
     Indication: DIFFUSE LARGE B-CELL LYMPHOMA
     Dosage: 6 CYCLES R?CHOP
     Route: 065
     Dates: start: 201611, end: 201704
  4. ETOPOSIDE. [Suspect]
     Active Substance: ETOPOSIDE
     Indication: DIFFUSE LARGE B-CELL LYMPHOMA
     Dosage: HIGH DOSE BEAM
     Route: 065
     Dates: start: 201903
  5. BENDAMUSTINE HYDROCHLORIDE. [Suspect]
     Active Substance: BENDAMUSTINE HYDROCHLORIDE
     Dosage: BRIDGING THERAPY
     Route: 065
     Dates: start: 20191205
  6. CARMUSTINE. [Suspect]
     Active Substance: CARMUSTINE
     Indication: DIFFUSE LARGE B-CELL LYMPHOMA
     Dosage: HIGH DOSE BEAM
     Route: 065
     Dates: start: 201903
  7. CYCLOPHOSPHAMIDE. [Suspect]
     Active Substance: CYCLOPHOSPHAMIDE
     Indication: DIFFUSE LARGE B-CELL LYMPHOMA
     Dosage: 6 CYCLES R?CHOP
     Route: 065
     Dates: start: 201611, end: 201704
  8. POLATUZUMAB VEDOTIN. [Suspect]
     Active Substance: POLATUZUMAB VEDOTIN
     Indication: DIFFUSE LARGE B-CELL LYMPHOMA
     Dosage: 4 CYCLES RITUXIMAB/POLATUZUMAB
     Route: 065
     Dates: start: 202005, end: 202007
  9. RITUXIMAB. [Suspect]
     Active Substance: RITUXIMAB
     Dosage: 6 CYCLES R?CHOP
     Route: 065
     Dates: start: 201611, end: 201704
  10. POLATUZUMAB VEDOTIN. [Suspect]
     Active Substance: POLATUZUMAB VEDOTIN
     Dosage: BRIDGING THERAPY
     Route: 065
     Dates: start: 20191205
  11. RITUXIMAB. [Suspect]
     Active Substance: RITUXIMAB
     Dosage: 4 CYCLES RITUXIMAB/POLATUZUMAB
     Route: 065
     Dates: start: 202005, end: 202007
  12. PREDNISONE. [Suspect]
     Active Substance: PREDNISONE
     Indication: DIFFUSE LARGE B-CELL LYMPHOMA
     Dosage: 6 CYCLES R?CHOP
     Route: 065
     Dates: start: 201611, end: 201704
  13. CISPLATIN. [Suspect]
     Active Substance: CISPLATIN
     Indication: DIFFUSE LARGE B-CELL LYMPHOMA
     Dosage: 4 CYCLES R?GDP
     Route: 065
     Dates: start: 201812
  14. CYCLOPHOSPHAMIDE. [Suspect]
     Active Substance: CYCLOPHOSPHAMIDE
     Indication: LYMPHOCYTE ADOPTIVE THERAPY
     Dosage: LYMPHODEPLETING CHEMOTHERAPY
     Route: 065
     Dates: start: 20191223, end: 20191224
  15. CYTARABINE. [Suspect]
     Active Substance: CYTARABINE
     Indication: DIFFUSE LARGE B-CELL LYMPHOMA
     Dosage: HIGH DOSE BEAM
     Route: 065
     Dates: start: 201903
  16. DEXAMETHASONE. [Suspect]
     Active Substance: DEXAMETHASONE
     Indication: DIFFUSE LARGE B-CELL LYMPHOMA
     Dosage: 4 CYCLES R?GDP
     Route: 065
     Dates: start: 201812
  17. OBINUTUZUMAB. [Suspect]
     Active Substance: OBINUTUZUMAB
     Indication: DIFFUSE LARGE B-CELL LYMPHOMA
     Dosage: 3 CYCLES
     Route: 065
     Dates: start: 201809
  18. POLATUZUMAB VEDOTIN. [Suspect]
     Active Substance: POLATUZUMAB VEDOTIN
     Dosage: 2 ADDITIONAL CYCLES R?POLA
     Route: 065
     Dates: start: 202009, end: 202010
  19. FLUDARABINE [Suspect]
     Active Substance: FLUDARABINE PHOSPHATE
     Indication: LYMPHOCYTE ADOPTIVE THERAPY
     Dosage: LYMPHODEPLETING CHEMOTHERAPY
     Route: 065
     Dates: start: 20191223, end: 20191224
  20. GEMCITABINE. [Suspect]
     Active Substance: GEMCITABINE
     Indication: DIFFUSE LARGE B-CELL LYMPHOMA
     Dosage: 4 CYCLES R?GDP
     Route: 065
     Dates: start: 201812
  21. BENDAMUSTINE HYDROCHLORIDE. [Suspect]
     Active Substance: BENDAMUSTINE HYDROCHLORIDE
     Indication: DIFFUSE LARGE B-CELL LYMPHOMA
     Dosage: 3 CYCLES
     Route: 065
     Dates: start: 201809
  22. RITUXIMAB. [Suspect]
     Active Substance: RITUXIMAB
     Indication: DIFFUSE LARGE B-CELL LYMPHOMA
     Dosage: BRIDGING THERAPY
     Route: 065
     Dates: start: 20191205
  23. MELPHALAN. [Suspect]
     Active Substance: MELPHALAN
     Indication: DIFFUSE LARGE B-CELL LYMPHOMA
     Dosage: HIGH DOSE BEAM
     Route: 065
     Dates: start: 201903
  24. VINCRISTINE SULFATE. [Suspect]
     Active Substance: VINCRISTINE SULFATE
     Indication: DIFFUSE LARGE B-CELL LYMPHOMA
     Dosage: 6 CYCLES R?CHOP
     Route: 065
     Dates: start: 201611, end: 201704

REACTIONS (6)
  - Lymphadenopathy [Unknown]
  - Off label use [Unknown]
  - Ill-defined disorder [Unknown]
  - Intentional product use issue [Unknown]
  - Diffuse large B-cell lymphoma [Unknown]
  - Myelosuppression [Unknown]

NARRATIVE: CASE EVENT DATE: 201807
